FAERS Safety Report 12523240 (Version 1)
Quarter: 2016Q3

REPORT INFORMATION
  Report Type: Report from Study
  Country: JP (occurrence: JP)
  Receive Date: 20160702
  Receipt Date: 20160702
  Transmission Date: 20161109
  Serious: Yes (Other)
  Sender: FDA-Public Use
  Company Number: JP-AMGEN-JPNNI2016084746

PATIENT
  Age: 77 Year
  Sex: Male

DRUGS (4)
  1. LEUPLIN [Concomitant]
     Active Substance: LEUPROLIDE ACETATE
     Dosage: UNK
     Route: 065
  2. UFT [Concomitant]
     Active Substance: TEGAFUR\URACIL
     Dosage: UNK
     Route: 065
  3. ODYNE [Concomitant]
     Active Substance: FLUTAMIDE
     Dosage: 125 MG, UNK
     Route: 065
  4. DENOSUMAB [Suspect]
     Active Substance: DENOSUMAB
     Indication: PRODUCT USED FOR UNKNOWN INDICATION
     Dosage: 120 MG, Q3MO
     Route: 058
     Dates: start: 20120813, end: 20160617

REACTIONS (1)
  - Osteonecrosis of jaw [Unknown]
